FAERS Safety Report 6133172-1 (Version None)
Quarter: 2009Q1

REPORT INFORMATION
  Report Type: 
  Country: None (occurrence: None)
  Receive Date: 20090324
  Receipt Date: 20090324
  Transmission Date: 20090719
  Serious: Yes (Hospitalization, Other)
  Sender: FDA-Public Use
  Company Number: None

PATIENT
  Age: 47 Year
  Sex: Female
  Weight: 113.3993 kg

DRUGS (1)
  1. WELLBUTRIN SR [Suspect]
     Indication: MAJOR DEPRESSION
     Dosage: 150MG ONCE DAILY PO
     Route: 048
     Dates: start: 20080929, end: 20081004

REACTIONS (12)
  - AGITATION [None]
  - ANAEMIA [None]
  - ANXIETY [None]
  - DEHYDRATION [None]
  - DISTURBANCE IN ATTENTION [None]
  - HYPERVIGILANCE [None]
  - INSOMNIA [None]
  - MYOCARDIAL INFARCTION [None]
  - PARANOIA [None]
  - SOMNOLENCE [None]
  - SUSPICIOUSNESS [None]
  - TACHYPHRENIA [None]
